FAERS Safety Report 14491965 (Version 1)
Quarter: 2018Q1

REPORT INFORMATION
  Report Type: Spontaneous
  Country: US (occurrence: US)
  Receive Date: 20180206
  Receipt Date: 20180206
  Transmission Date: 20180509
  Serious: Yes (Hospitalization)
  Sender: FDA-Public Use
  Company Number: US-BAYER-2018-023134

PATIENT
  Age: 30 Year
  Sex: Male

DRUGS (1)
  1. GADAVIST [Suspect]
     Active Substance: GADOBUTROL
     Dosage: 60.6 ML, ONCE

REACTIONS (2)
  - Blood pressure decreased [Recovering/Resolving]
  - Hyperhidrosis [None]
